FAERS Safety Report 9651942 (Version 2)
Quarter: 2013Q4

REPORT INFORMATION
  Report Type: Spontaneous
  Country: US (occurrence: US)
  Receive Date: 20131029
  Receipt Date: 20131031
  Transmission Date: 20140711
  Serious: Yes (Other)
  Sender: FDA-Public Use
  Company Number: US-B.I. PHARMACEUTICALS,INC./RIDGEFIELD-2013-BI-33749BP

PATIENT
  Sex: Male
  Weight: 73 kg

DRUGS (5)
  1. FLOMAX CAPSULES [Suspect]
     Indication: BENIGN PROSTATIC HYPERPLASIA
     Dosage: 0.4 MG
     Route: 048
     Dates: start: 2006, end: 20131006
  2. LEVOTHYROXINE [Concomitant]
     Indication: HYPOTHYROIDISM
     Dosage: 125 MCG
     Route: 048
  3. CIALIS [Concomitant]
     Indication: BENIGN PROSTATIC HYPERPLASIA
     Dosage: 5 MG
     Route: 048
  4. NEXIUM [Concomitant]
     Indication: GASTROOESOPHAGEAL REFLUX DISEASE
     Dosage: 40 MG
     Route: 048
  5. SPIRONOLACTONE [Concomitant]
     Dosage: 25 MG
     Route: 048

REACTIONS (2)
  - Prostate cancer [Unknown]
  - Cataract [Not Recovered/Not Resolved]
